FAERS Safety Report 9474801 (Version 2)
Quarter: 2013Q3

REPORT INFORMATION
  Report Type: Spontaneous
  Country: US (occurrence: US)
  Receive Date: 20130823
  Receipt Date: 20130823
  Transmission Date: 20140515
  Serious: Yes (Hospitalization)
  Sender: FDA-Public Use
  Company Number: US-ROCHE-1247899

PATIENT
  Age: 52 Year
  Sex: 0
  Weight: 90.8 kg

DRUGS (6)
  1. XOLAIR [Suspect]
     Indication: ASTHMA
     Route: 058
     Dates: start: 20130702, end: 20130702
  2. ESCITALOPRAM [Concomitant]
     Indication: DEPRESSION
     Route: 048
  3. BUSPIRONE [Concomitant]
     Route: 048
  4. LISINOPRIL [Concomitant]
     Indication: HYPERTENSION
     Route: 048
  5. AMLODIPINE [Concomitant]
     Route: 048
  6. NASONEX [Concomitant]
     Indication: RHINITIS ALLERGIC
     Dosage: 2 SPRAYS
     Route: 055
     Dates: start: 201302

REACTIONS (3)
  - Urticaria [Recovered/Resolved]
  - Pruritus [Recovered/Resolved]
  - Hypersensitivity [Unknown]
